FAERS Safety Report 9119660 (Version 1)
Quarter: 2013Q1

REPORT INFORMATION
  Report Type: Spontaneous
  Country: GB (occurrence: GB)
  Receive Date: 20130207
  Receipt Date: 20130207
  Transmission Date: 20140127
  Serious: Yes (Other)
  Sender: FDA-Public Use
  Company Number: GB-B.I. PHARMACEUTICALS,INC./RIDGEFIELD-2013-UK-00164UK

PATIENT
  Age: 72 Year
  Sex: Female
  Weight: 81 kg

DRUGS (16)
  1. TRAJENTA [Suspect]
     Route: 048
     Dates: start: 20121207
  2. AMLODIPINE [Concomitant]
     Dates: start: 20121005, end: 20121229
  3. ASPIRIN [Concomitant]
     Dates: start: 20121005, end: 20121229
  4. BISOPROLOL [Concomitant]
     Dates: start: 20121005, end: 20121217
  5. CO-CODAMOL [Concomitant]
     Dates: start: 20121005, end: 20121229
  6. CODEINE PHOSPHATE [Concomitant]
     Dates: start: 20130104
  7. DICLOFENAC SODIUM [Concomitant]
     Dates: start: 20121201, end: 20121217
  8. DOMPERIDONE [Concomitant]
     Dates: start: 20121212, end: 20121222
  9. DOXYCYCLINE [Concomitant]
     Dates: start: 20130104, end: 20130111
  10. GLICLAZIDE [Concomitant]
     Dates: start: 20121201, end: 20121229
  11. HYDROXOCOBALAMIN [Concomitant]
     Dates: start: 20121005, end: 20121229
  12. LANSOPRAZOLE [Concomitant]
     Dates: start: 20121212, end: 20130109
  13. LISINOPRIL [Concomitant]
     Dates: start: 20121005, end: 20121229
  14. METFORMIN [Concomitant]
     Dates: start: 20121005, end: 20121229
  15. SIMVASTATIN [Concomitant]
     Dates: start: 20121005, end: 20121229
  16. WARFARIN SODIUM [Concomitant]
     Dates: start: 20121214, end: 20130111

REACTIONS (2)
  - Vomiting [Not Recovered/Not Resolved]
  - Malaise [Unknown]
